FAERS Safety Report 18247673 (Version 1)
Quarter: 2020Q3

REPORT INFORMATION
  Report Type: Spontaneous
  Country: US (occurrence: US)
  Receive Date: 20200909
  Receipt Date: 20200909
  Transmission Date: 20201103
  Serious: No
  Sender: FDA-Public Use
  Company Number: US-MYLANLABS-2020M1073041

PATIENT
  Sex: Male
  Weight: 111 kg

DRUGS (2)
  1. DYMISTA [Suspect]
     Active Substance: AZELASTINE HYDROCHLORIDE\FLUTICASONE PROPIONATE
     Dosage: ONE SPRAY PER NOSTRIL EACH DAY
     Route: 045
  2. DYMISTA [Suspect]
     Active Substance: AZELASTINE HYDROCHLORIDE\FLUTICASONE PROPIONATE
     Indication: HYPERSENSITIVITY
     Dosage: (137/50), TWO SPRAYS PER EACH NOSTRIL ONCE A DAY
     Route: 045

REACTIONS (4)
  - Product quality issue [Recovered/Resolved]
  - Sneezing [Unknown]
  - Incorrect dose administered [Not Recovered/Not Resolved]
  - Wrong technique in product usage process [Unknown]
